FAERS Safety Report 7397168-4 (Version None)
Quarter: 2011Q1

REPORT INFORMATION
  Report Type: 
  Country: None (occurrence: None)
  Receive Date: 20110328
  Receipt Date: 20110311
  Transmission Date: 20110831
  Serious: Yes (Other)
  Sender: FDA-Public Use
  Company Number: 1012-502

PATIENT
  Age: 55 Year
  Sex: Male
  Weight: 87.5442 kg

DRUGS (2)
  1. ARCALYST [Suspect]
     Indication: CRYOPYRIN ASSOCIATED PERIODIC SYNDROME
     Dosage: 160 MG ONCE, WEEKLY, SUBCUTANEOUS
     Route: 058
     Dates: start: 20080625, end: 20100901
  2. ARCALYST [Suspect]
     Indication: CRYOPYRIN ASSOCIATED PERIODIC SYNDROME
     Dosage: 160 MG ONCE, WEEKLY, SUBCUTANEOUS
     Route: 058
     Dates: start: 20110201

REACTIONS (2)
  - POST PROCEDURAL INFECTION [None]
  - STAPHYLOCOCCAL INFECTION [None]
